FAERS Safety Report 14764786 (Version 1)
Quarter: 2018Q2

REPORT INFORMATION
  Report Type: Spontaneous
  Country: MY (occurrence: MY)
  Receive Date: 20180416
  Receipt Date: 20180416
  Transmission Date: 20180711
  Serious: Yes (Life-Threatening, Other)
  Sender: FDA-Public Use
  Company Number: MY-PFIZER INC-2018152802

PATIENT
  Sex: Male

DRUGS (2)
  1. ERIMIN [Suspect]
     Active Substance: NIMETAZEPAM
     Dosage: 5 PILLS
  2. XANAX [Suspect]
     Active Substance: ALPRAZOLAM
     Dosage: UNK

REACTIONS (3)
  - Drug abuse [Unknown]
  - Anxiety [Unknown]
  - Depression [Unknown]
